FAERS Safety Report 7966362-3 (Version None)
Quarter: 2011Q4

REPORT INFORMATION
  Report Type: 
  Country: None (occurrence: None)
  Receive Date: 20111208
  Receipt Date: 20111202
  Transmission Date: 20120403
  Serious: Yes (Life-Threatening, Hospitalization)
  Sender: FDA-Public Use
  Company Number: PL-COVIDIEN/TYCO HEALTHCARE/MALLINCKRODT-T201102812

PATIENT
  Sex: Male
  Weight: 95 kg

DRUGS (1)
  1. OPTIRAY 160 [Suspect]
     Indication: ARTERIOGRAM CORONARY
     Dosage: 80 ML, SINGLE
     Route: 013
     Dates: start: 20111103, end: 20111103

REACTIONS (1)
  - CARDIAC ARREST [None]
